FAERS Safety Report 22634355 (Version 1)
Quarter: 2023Q2

REPORT INFORMATION
  Report Type: Spontaneous
  Country: CN (occurrence: CN)
  Receive Date: 20230623
  Receipt Date: 20230623
  Transmission Date: 20230722
  Serious: Yes (Other)
  Sender: FDA-Public Use
  Company Number: CN-009507513-2306CHN010408

PATIENT
  Age: 71 Year
  Sex: Male

DRUGS (3)
  1. CILASTATIN SODIUM\IMIPENEM [Suspect]
     Active Substance: CILASTATIN SODIUM\IMIPENEM
     Indication: Pneumonitis
     Dosage: 2 BOTTLES (ALSO REPORTED AS 1G), Q8H
     Route: 041
     Dates: start: 20230502, end: 20230506
  2. CILASTATIN SODIUM\IMIPENEM [Suspect]
     Active Substance: CILASTATIN SODIUM\IMIPENEM
     Dosage: 1 BOTTLE (ALSO REPORTED AS 0.5G), Q6H
     Route: 041
     Dates: start: 20230506, end: 20230512
  3. CILASTATIN SODIUM\IMIPENEM [Suspect]
     Active Substance: CILASTATIN SODIUM\IMIPENEM
     Dosage: 1 BOTTLE (ALSO REPORTED AS 0.5G), BID
     Route: 041
     Dates: start: 20230512, end: 20230518

REACTIONS (1)
  - Epilepsy [Unknown]

NARRATIVE: CASE EVENT DATE: 20230518
